FAERS Safety Report 9176145 (Version 1)
Quarter: 2013Q1

REPORT INFORMATION
  Report Type: Spontaneous
  Country: US (occurrence: US)
  Receive Date: 20130321
  Receipt Date: 20130321
  Transmission Date: 20140127
  Serious: Yes (Other)
  Sender: FDA-Public Use
  Company Number: PHHY2013US025410

PATIENT
  Age: 61 Year
  Sex: Male

DRUGS (3)
  1. METHOTREXATE [Suspect]
     Indication: LYMPHOMA
     Dosage: 300?G/0.05ML BIWEEKLY FOR 1 MONTH
  2. METHOTREXATE [Suspect]
     Dosage: 300?G/0.05ML  WEEKLY FOR 1 MONTH
  3. RITUXIMAB [Concomitant]
     Dosage: 1000 UG IN 0.1 ML MONTHLY INJECTIONS

REACTIONS (2)
  - Keratitis [Recovered/Resolved]
  - Toxicity to various agents [Unknown]
